FAERS Safety Report 15569284 (Version 1)
Quarter: 2018Q4

REPORT INFORMATION
  Report Type: Spontaneous
  Country: US (occurrence: US)
  Receive Date: 20181031
  Receipt Date: 20181031
  Transmission Date: 20190205
  Serious: No
  Sender: FDA-Public Use
  Company Number: US-CHARTWELL PHARMA-2058257

PATIENT
  Age: 78 Year
  Sex: Female
  Weight: 68.04 kg

DRUGS (6)
  1. SYNTHROID [Concomitant]
     Active Substance: LEVOTHYROXINE SODIUM
     Dates: end: 20180513
  2. ASPIRIN. [Concomitant]
     Active Substance: ASPIRIN
  3. METOPROLOL. [Concomitant]
     Active Substance: METOPROLOL
     Dates: end: 20180513
  4. DOXYCYCLINE HYCLATE. [Suspect]
     Active Substance: DOXYCYCLINE HYCLATE
     Indication: BACTERIAL INFECTION
     Route: 048
     Dates: start: 20180508, end: 20180513
  5. LASIX [Concomitant]
     Active Substance: FUROSEMIDE
     Dates: end: 20180513
  6. ENALAPRIL [Concomitant]
     Active Substance: ENALAPRIL
     Dates: end: 20180513

REACTIONS (3)
  - Cheilitis [Recovered/Resolved]
  - Lip exfoliation [Recovered/Resolved]
  - Lip swelling [Recovered/Resolved]

NARRATIVE: CASE EVENT DATE: 20180512
